FAERS Safety Report 7813732-X (Version None)
Quarter: 2011Q4

REPORT INFORMATION
  Report Type: 
  Country: None (occurrence: None)
  Receive Date: 20111011
  Receipt Date: 20090901
  Transmission Date: 20120403
  Serious: Yes (Hospitalization, Other)
  Sender: FDA-Public Use
  Company Number: 2009SP023520

PATIENT
  Age: 40 Year
  Sex: Female
  Weight: 68.0396 kg

DRUGS (5)
  1. BUTALBITAL [Concomitant]
  2. EFFEXOR [Concomitant]
  3. TOPAMAX [Concomitant]
  4. NUVARING [Suspect]
     Indication: CONTRACEPTION
     Dosage: 1 DF
     Dates: start: 20080227, end: 20080701
  5. ADVAIR DISKUS 100/50 [Concomitant]

REACTIONS (11)
  - PULMONARY EMBOLISM [None]
  - BLOOD HOMOCYSTEINE DECREASED [None]
  - UTERINE HAEMORRHAGE [None]
  - ATELECTASIS [None]
  - HAEMATURIA [None]
  - PULMONARY INFARCTION [None]
  - ASTHMA [None]
  - PLEURAL EFFUSION [None]
  - ABDOMINAL NEOPLASM [None]
  - CHEST PAIN [None]
  - DEPRESSION [None]
